FAERS Safety Report 4877280-1 (Version None)
Quarter: 2006Q1

REPORT INFORMATION
  Report Type: 
  Country: None (occurrence: None)
  Receive Date: 20060106
  Receipt Date: 20051221
  Transmission Date: 20060701
  Serious: Yes (Death, Hospitalization)
  Sender: FDA-Public Use
  Company Number: 2006EU000012

PATIENT
  Age: 53 Year
  Sex: Female

DRUGS (5)
  1. FK506 (TACROLIMUS) CAPSULE [Suspect]
     Indication: LIVER TRANSPLANT
     Dosage: 2.5 MG, BID,  ORAL
     Route: 048
     Dates: start: 20050508, end: 20050918
  2. PREDNISONE [Suspect]
     Indication: LIVER TRANSPLANT
     Dosage: 30 MG, UID/QD
     Dates: start: 20050508
  3. VANCOMYCIN [Concomitant]
  4. PANTOPRAZOLE SODIUM [Concomitant]
  5. TRAMADOL HCL [Concomitant]

REACTIONS (10)
  - ASPIRATION BRONCHIAL [None]
  - BONE MARROW FAILURE [None]
  - DIFFUSE LARGE B-CELL LYMPHOMA [None]
  - ESCHERICHIA INFECTION [None]
  - LYMPHADENOPATHY [None]
  - PYREXIA [None]
  - RENAL FAILURE [None]
  - SPUTUM CULTURE [None]
  - STAPHYLOCOCCAL INFECTION [None]
  - THROMBOCYTOPENIA [None]
